FAERS Safety Report 18198335 (Version 1)
Quarter: 2020Q3

REPORT INFORMATION
  Report Type: Other
  Country: JP (occurrence: JP)
  Receive Date: 20200826
  Receipt Date: 20200826
  Transmission Date: 20201103
  Serious: Yes (Death, Hospitalization)
  Sender: FDA-Public Use
  Company Number: JP-ROCHE-2664842

PATIENT
  Age: 9 Decade
  Sex: Male

DRUGS (1)
  1. TECENTRIQ [Suspect]
     Active Substance: ATEZOLIZUMAB
     Indication: LUNG ADENOCARCINOMA
     Dosage: DOSAGE IS UNCERTAIN.
     Route: 041

REACTIONS (3)
  - Death [Fatal]
  - Immune-mediated hepatic disorder [Unknown]
  - Cholangitis [Unknown]
